FAERS Safety Report 17187783 (Version 2)
Quarter: 2022Q1

REPORT INFORMATION
  Report Type: Spontaneous
  Country: BE (occurrence: BE)
  Receive Date: 20191221
  Receipt Date: 20220128
  Transmission Date: 20220423
  Serious: Yes (Other)
  Sender: FDA-Public Use
  Company Number: BE-SUN PHARMACEUTICAL INDUSTRIES LTD-2019R1-231211

PATIENT
  Age: 42 Year
  Sex: Male
  Weight: 89 kg

DRUGS (8)
  1. HYDROCORTISONE [Interacting]
     Active Substance: HYDROCORTISONE
     Indication: Adrenal insufficiency
     Dosage: 15 MILLIGRAM, DAILY
     Route: 065
  2. HYDROCORTISONE [Interacting]
     Active Substance: HYDROCORTISONE
     Dosage: 20 MILLIGRAM, DAILY
     Route: 065
  3. FLUDROCORTISONE [Suspect]
     Active Substance: FLUDROCORTISONE
     Indication: Adrenal insufficiency
     Dosage: 50 MICROGRAM, DAILY
     Route: 065
  4. RIFAMPIN [Suspect]
     Active Substance: RIFAMPIN
     Indication: Adrenal insufficiency
     Dosage: 600 MILLIGRAM, DAILY
     Route: 065
  5. ISONIAZID [Concomitant]
     Active Substance: ISONIAZID
     Indication: Adrenal insufficiency
     Dosage: 300 MILLIGRAM, DAILY
     Route: 065
  6. PYRIDOXINE [Concomitant]
     Active Substance: PYRIDOXINE
     Indication: Adrenal insufficiency
     Dosage: 250 MILLIGRAM, WEEKLY
     Route: 065
  7. PYRAZINAMIDE [Concomitant]
     Active Substance: PYRAZINAMIDE
     Indication: Adrenal insufficiency
     Dosage: 500 MILLIGRAM, QID
     Route: 065
  8. MYAMBUTOL [Concomitant]
     Active Substance: ETHAMBUTOL HYDROCHLORIDE
     Indication: Adrenal insufficiency
     Dosage: 400 MILLIGRAM, QID
     Route: 065

REACTIONS (1)
  - Drug interaction [Unknown]
